FAERS Safety Report 4606603-3 (Version None)
Quarter: 2005Q2

REPORT INFORMATION
  Report Type: 
  Country: None (occurrence: None)
  Receive Date: 20050223
  Receipt Date: 20040503
  Transmission Date: 20051028
  Serious: Yes (Hospitalization)
  Sender: FDA-Public Use
  Company Number: WAES 0405USA00101

PATIENT
  Age: 49 Year
  Sex: Female

DRUGS (14)
  1. ZOCOR [Suspect]
     Dosage: PO
     Route: 048
  2. CLARITIN [Concomitant]
  3. HUMULIN [Concomitant]
  4. IMURAN [Concomitant]
  5. LASIX [Concomitant]
  6. LEVOXYL [Concomitant]
  7. PROCRIT [Concomitant]
  8. PROVERA [Concomitant]
  9. RHINOCORT [Concomitant]
  10. ASPIRIN [Concomitant]
  11. ATENOLOL [Concomitant]
  12. CYCLOSPORINE [Concomitant]
  13. FOLIC ACID [Concomitant]
  14. IRON (UNSPECIFIED) [Concomitant]

REACTIONS (3)
  - BLOOD CREATINE PHOSPHOKINASE INCREASED [None]
  - MUSCULAR WEAKNESS [None]
  - MYALGIA [None]
